FAERS Safety Report 8260632-X (Version None)
Quarter: 2012Q2

REPORT INFORMATION
  Report Type: 
  Country: None (occurrence: None)
  Receive Date: 20120404
  Receipt Date: 20120326
  Transmission Date: 20120825
  Serious: Yes (Other)
  Sender: FDA-Public Use
  Company Number: CA-BAXTER-2011BH040440

PATIENT
  Sex: Male

DRUGS (2)
  1. GAMMAGARD LIQUID [Suspect]
     Route: 065
     Dates: start: 20110719, end: 20110719
  2. GAMMAGARD LIQUID [Suspect]
     Route: 065
     Dates: start: 20110719, end: 20110719

REACTIONS (2)
  - CHILLS [None]
  - PYREXIA [None]
